FAERS Safety Report 13887922 (Version 2)
Quarter: 2017Q3

REPORT INFORMATION
  Report Type: Spontaneous
  Country: US (occurrence: US)
  Receive Date: 20170821
  Receipt Date: 20170920
  Transmission Date: 20171127
  Serious: Yes (Death, Other)
  Sender: FDA-Public Use
  Company Number: CA-NAPPMUNDI-USA-2017-0140428

PATIENT
  Age: 1 Year
  Sex: Male
  Weight: 10.88 kg

DRUGS (3)
  1. OXYCODONE HYDROCHLORIDE (SIMILAR TO NDA 22-272) [Suspect]
     Active Substance: OXYCODONE HYDROCHLORIDE
     Indication: EXPOSURE VIA INGESTION
     Dosage: UNK
     Route: 048
     Dates: start: 20170517
  2. ALPRAZOLAM. [Suspect]
     Active Substance: ALPRAZOLAM
     Indication: EXPOSURE VIA INGESTION
     Dosage: UNK
     Route: 065
     Dates: start: 20170517
  3. DIPHENHYDRAMINE. [Suspect]
     Active Substance: DIPHENHYDRAMINE
     Indication: EXPOSURE VIA INGESTION
     Dosage: UNK
     Route: 065

REACTIONS (6)
  - Pulmonary oedema [Fatal]
  - Unresponsive to stimuli [Not Recovered/Not Resolved]
  - Peripheral coldness [Unknown]
  - Exposure via ingestion [Unknown]
  - Toxicity to various agents [Fatal]
  - Respiratory arrest [Not Recovered/Not Resolved]

NARRATIVE: CASE EVENT DATE: 20170517
